FAERS Safety Report 5032253-3 (Version None)
Quarter: 2006Q2

REPORT INFORMATION
  Report Type: 
  Country: None (occurrence: None)
  Receive Date: 20060619
  Receipt Date: 20060605
  Transmission Date: 20061013
  Serious: Yes (Hospitalization)
  Sender: FDA-Public Use
  Company Number: 225948

PATIENT
  Age: 64 Year
  Sex: Female
  Weight: 77.2 kg

DRUGS (1)
  1. AVASTIN [Suspect]
     Indication: BREAST CANCER METASTATIC
     Dosage: 15 MG/KG, Q3W, INTRAVENOUS
     Route: 042
     Dates: start: 20051006

REACTIONS (4)
  - ADENOCARCINOMA [None]
  - HYDROPNEUMOTHORAX [None]
  - MALIGNANT PLEURAL EFFUSION [None]
  - POST PROCEDURAL COMPLICATION [None]
